FAERS Safety Report 21145253 (Version 3)
Quarter: 2022Q3

REPORT INFORMATION
  Report Type: Report from Study
  Country: ZA (occurrence: ZA)
  Receive Date: 20220729
  Receipt Date: 20220818
  Transmission Date: 20221027
  Serious: Yes (Other)
  Sender: FDA-Public Use
  Company Number: ZA-CELLTRION INC.-2022ZA011792

PATIENT

DRUGS (9)
  1. INFLIXIMAB [Suspect]
     Active Substance: INFLIXIMAB
     Indication: Rheumatoid arthritis
     Dosage: 400 MG, 8 WEEKLY (LOADING DOSE OF 300 MG AT WEEK 0)
     Route: 042
     Dates: start: 20211123
  2. INFLIXIMAB [Suspect]
     Active Substance: INFLIXIMAB
     Dosage: 300 MG AT 8 WEEKLY (WEEK 2)
     Route: 042
     Dates: start: 20211207
  3. INFLIXIMAB [Suspect]
     Active Substance: INFLIXIMAB
     Dosage: 300 MG AT 8 WEEKLY (WEEK 6)
     Route: 042
     Dates: start: 20220111
  4. INFLIXIMAB [Suspect]
     Active Substance: INFLIXIMAB
     Dosage: 300 MG AT 8 WEEKLY
     Route: 042
     Dates: start: 20220307
  5. INFLIXIMAB [Suspect]
     Active Substance: INFLIXIMAB
     Dosage: 300 MG AT 8 WEEKLY
     Route: 042
     Dates: start: 20220429
  6. INFLIXIMAB [Suspect]
     Active Substance: INFLIXIMAB
     Dosage: 300 MG AT 8 WEEKLY
     Route: 042
     Dates: start: 20220628
  7. METHOTREXATE [Concomitant]
     Active Substance: METHOTREXATE
     Indication: Rheumatoid arthritis
     Dosage: 20 MG/WEEK
     Dates: start: 2013
  8. CHLOROQUINE [Concomitant]
     Active Substance: CHLOROQUINE
     Indication: Rheumatoid arthritis
     Dosage: 200 MG, DAILY
     Dates: start: 2008
  9. CYCLOSPORINE [Concomitant]
     Active Substance: CYCLOSPORINE
     Indication: Rheumatoid arthritis
     Dosage: 75 MG TWICE DAILY
     Dates: start: 201404

REACTIONS (3)
  - Uveitis [Recovering/Resolving]
  - Macular oedema [Recovering/Resolving]
  - Overdose [Unknown]
